FAERS Safety Report 8834359 (Version 1)
Quarter: 2012Q4

REPORT INFORMATION
  Report Type: 
  Country: CA (occurrence: CA)
  Receive Date: 20121010
  Receipt Date: 20121010
  Transmission Date: 20130627
  Serious: Yes (Other)
  Sender: FDA-Public Use
  Company Number: CA-ROXANE LABORATORIES, INC.-2012-RO-01977RO

PATIENT
  Age: 46 Year
  Sex: Male
  Weight: 111 kg

DRUGS (2)
  1. DEXAMETHASONE [Suspect]
     Indication: GLIOBLASTOMA MULTIFORME
     Route: 048
  2. TEMOZOLOMIDE [Suspect]
     Indication: GLIOBLASTOMA MULTIFORME

REACTIONS (2)
  - Non-alcoholic steatohepatitis [Unknown]
  - Hyperglycaemia [Unknown]
